FAERS Safety Report 16680678 (Version 1)
Quarter: 2019Q3

REPORT INFORMATION
  Report Type: Spontaneous
  Country: CN (occurrence: CN)
  Receive Date: 20190808
  Receipt Date: 20190808
  Transmission Date: 20191004
  Serious: Yes (Other)
  Sender: FDA-Public Use
  Company Number: CN-ROCHE-2366731

PATIENT
  Age: 76 Year
  Sex: Male

DRUGS (22)
  1. OXALIPLATIN. [Concomitant]
     Active Substance: OXALIPLATIN
     Indication: METASTASES TO LYMPH NODES
  2. CETUXIMAB. [Concomitant]
     Active Substance: CETUXIMAB
     Indication: METASTASES TO LYMPH NODES
     Route: 065
     Dates: start: 20171012, end: 20180205
  3. GIMERACIL;OTERACIL POTASSIUM;TEGAFUR [Concomitant]
     Active Substance: GIMERACIL\OTERACIL\TEGAFUR
     Indication: INVASIVE BREAST CARCINOMA
     Route: 065
     Dates: start: 2017
  4. GIMERACIL;OTERACIL POTASSIUM;TEGAFUR [Concomitant]
     Active Substance: GIMERACIL\OTERACIL\TEGAFUR
     Indication: METASTASES TO LYMPH NODES
  5. RALTITREXED [Concomitant]
     Active Substance: RALTITREXED
     Indication: METASTASES TO LYMPH NODES
  6. PEMBROLIZUMAB. [Concomitant]
     Active Substance: PEMBROLIZUMAB
     Indication: INVASIVE BREAST CARCINOMA
     Route: 041
     Dates: start: 20180616
  7. REGORAFENIB. [Concomitant]
     Active Substance: REGORAFENIB
     Route: 048
     Dates: start: 201902
  8. OXALIPLATIN. [Concomitant]
     Active Substance: OXALIPLATIN
     Indication: INVASIVE BREAST CARCINOMA
     Route: 065
     Dates: start: 2016
  9. IRINOTECAN [Concomitant]
     Active Substance: IRINOTECAN
     Indication: INVASIVE BREAST CARCINOMA
     Route: 065
     Dates: start: 2017
  10. REGORAFENIB. [Concomitant]
     Active Substance: REGORAFENIB
     Route: 048
     Dates: start: 20180616
  11. XELODA [Suspect]
     Active Substance: CAPECITABINE
     Indication: METASTASES TO LYMPH NODES
  12. PEMBROLIZUMAB. [Concomitant]
     Active Substance: PEMBROLIZUMAB
     Indication: METASTASES TO LYMPH NODES
     Route: 041
     Dates: start: 20181102
  13. XELODA [Suspect]
     Active Substance: CAPECITABINE
     Indication: INVASIVE BREAST CARCINOMA
     Route: 065
     Dates: start: 2016
  14. TEGAFUR [Concomitant]
     Active Substance: TEGAFUR
     Indication: METASTASES TO LYMPH NODES
  15. CETUXIMAB. [Concomitant]
     Active Substance: CETUXIMAB
     Indication: INVASIVE BREAST CARCINOMA
     Route: 065
     Dates: start: 2017
  16. BISPHOSPHONATES [Concomitant]
     Active Substance: UNSPECIFIED INGREDIENT
     Dosage: BONE DESTRUCTION TREATMENT
     Route: 065
  17. REGORAFENIB. [Concomitant]
     Active Substance: REGORAFENIB
     Indication: INVASIVE BREAST CARCINOMA
     Route: 048
  18. REGORAFENIB. [Concomitant]
     Active Substance: REGORAFENIB
     Indication: METASTASES TO LYMPH NODES
     Route: 048
     Dates: start: 2018, end: 2018
  19. TEGAFUR [Concomitant]
     Active Substance: TEGAFUR
     Indication: INVASIVE BREAST CARCINOMA
     Route: 048
  20. REGORAFENIB. [Concomitant]
     Active Substance: REGORAFENIB
     Route: 048
     Dates: start: 2018, end: 2018
  21. IRINOTECAN [Concomitant]
     Active Substance: IRINOTECAN
     Indication: METASTASES TO LYMPH NODES
     Route: 065
     Dates: start: 20171012, end: 20180205
  22. RALTITREXED [Concomitant]
     Active Substance: RALTITREXED
     Indication: INVASIVE BREAST CARCINOMA
     Route: 065
     Dates: start: 20171012, end: 20180205

REACTIONS (20)
  - Productive cough [Unknown]
  - Bone marrow failure [Recovering/Resolving]
  - Pulmonary fibrosis [Unknown]
  - Bone disorder [Unknown]
  - Hepatic cyst [Unknown]
  - Neurotoxicity [Unknown]
  - Nephrolithiasis [Unknown]
  - Cough [Unknown]
  - Cholecystitis [Unknown]
  - Gastrointestinal disorder [Unknown]
  - Lymphadenopathy [Unknown]
  - Bladder diverticulum [Unknown]
  - Musculoskeletal disorder [Unknown]
  - Osteoarthritis [Unknown]
  - Pain [Unknown]
  - Fatigue [Unknown]
  - Cholelithiasis [Unknown]
  - Degenerative bone disease [Unknown]
  - Joint effusion [Unknown]
  - Liver scan abnormal [Unknown]

NARRATIVE: CASE EVENT DATE: 2016
